FAERS Safety Report 6410126-9 (Version None)
Quarter: 2009Q4

REPORT INFORMATION
  Report Type: 
  Country: None (occurrence: None)
  Receive Date: 20091020
  Receipt Date: 20091020
  Transmission Date: 20100525
  Serious: Yes (Other)
  Sender: FDA-Public Use
  Company Number: None

PATIENT
  Age: 14 Year
  Sex: Female
  Weight: 105.2345 kg

DRUGS (2)
  1. CRYSELLE [Suspect]
     Indication: DYSMENORRHOEA
     Dosage: ONE PO QD
     Route: 048
     Dates: start: 20090819
  2. LO/OVRAL [Suspect]
     Indication: MENSTRUATION IRREGULAR
     Dates: start: 20090428, end: 20090728

REACTIONS (2)
  - MUSCLE SPASMS [None]
  - PRODUCT SUBSTITUTION ISSUE [None]
